FAERS Safety Report 15470784 (Version 3)
Quarter: 2018Q4

REPORT INFORMATION
  Report Type: Spontaneous
  Country: US (occurrence: US)
  Receive Date: 20181005
  Receipt Date: 20181217
  Transmission Date: 20190205
  Serious: Yes (Disabling, Other)
  Sender: FDA-Public Use
  Company Number: US-OTSUKA-2018_020754

PATIENT
  Age: 21 Year
  Sex: Female

DRUGS (5)
  1. ABILIFY [Suspect]
     Active Substance: ARIPIPRAZOLE
     Indication: BIPOLAR DISORDER
     Dosage: 10 MG, QD
     Route: 065
  2. ABILIFY [Suspect]
     Active Substance: ARIPIPRAZOLE
     Dosage: 15 MG, QD
     Route: 065
  3. ABILIFY [Suspect]
     Active Substance: ARIPIPRAZOLE
     Dosage: 20 MG, QD
     Route: 065
     Dates: end: 20151001
  4. ARIPIPRAZOLE. [Concomitant]
     Active Substance: ARIPIPRAZOLE
     Indication: PRODUCT USED FOR UNKNOWN INDICATION
     Dosage: UNK
     Route: 065
     Dates: start: 20150205, end: 20150608
  5. ABILIFY [Suspect]
     Active Substance: ARIPIPRAZOLE
     Indication: MAJOR DEPRESSION
     Dosage: 5 MG, QD
     Route: 065
     Dates: start: 20110101

REACTIONS (20)
  - Suicidal ideation [Unknown]
  - Eating disorder [Unknown]
  - Pain [Unknown]
  - Theft [Unknown]
  - Injury [Unknown]
  - Obsessive-compulsive disorder [Unknown]
  - Divorced [Unknown]
  - Anhedonia [Unknown]
  - Emotional distress [Unknown]
  - Gambling disorder [Not Recovered/Not Resolved]
  - Anxiety [Unknown]
  - Imprisonment [Unknown]
  - Condition aggravated [Unknown]
  - Shoplifting [Unknown]
  - Disability [Unknown]
  - Compulsive shopping [Unknown]
  - Economic problem [Unknown]
  - Compulsive sexual behaviour [Unknown]
  - Homeless [Unknown]
  - Suicide attempt [Unknown]

NARRATIVE: CASE EVENT DATE: 20110129
